FAERS Safety Report 15632844 (Version 1)
Quarter: 2018Q4

REPORT INFORMATION
  Report Type: Spontaneous
  Country: US (occurrence: US)
  Receive Date: 20181119
  Receipt Date: 20181119
  Transmission Date: 20190205
  Serious: Yes (Other)
  Sender: FDA-Public Use
  Company Number: None

PATIENT
  Age: 93 Year
  Sex: Male
  Weight: 50.4 kg

DRUGS (22)
  1. QUINAPRIL. [Concomitant]
     Active Substance: QUINAPRIL
  2. PRADAXA [Concomitant]
     Active Substance: DABIGATRAN ETEXILATE MESYLATE
  3. ESOMEPRAZOLE. [Concomitant]
     Active Substance: ESOMEPRAZOLE MAGNESIUM
  4. METOPROLOL. [Concomitant]
     Active Substance: METOPROLOL
  5. TRIAMCINOLONE ACETONIDE. [Concomitant]
     Active Substance: TRIAMCINOLONE ACETONIDE
  6. TRADJENTA [Concomitant]
     Active Substance: LINAGLIPTIN
  7. TAMSULOSIN [Concomitant]
     Active Substance: TAMSULOSIN
  8. PREGABALIN. [Concomitant]
     Active Substance: PREGABALIN
  9. TRAZODONE [Concomitant]
     Active Substance: TRAZODONE HYDROCHLORIDE
  10. VOLTAREN [Concomitant]
     Active Substance: DICLOFENAC SODIUM
  11. ACYCLOVIR. [Concomitant]
     Active Substance: ACYCLOVIR
  12. CAPECITABINE. [Suspect]
     Active Substance: CAPECITABINE
     Indication: PANCREATIC CARCINOMA
     Dosage: ?          OTHER FREQUENCY:EVERY 12 HR X14DAY;?
     Route: 048
     Dates: start: 20181029
  13. URSODOIL [Concomitant]
  14. ATORVASTATIN [Concomitant]
     Active Substance: ATORVASTATIN
  15. MIRTAZAPINE. [Concomitant]
     Active Substance: MIRTAZAPINE
  16. AMITIZA [Concomitant]
     Active Substance: LUBIPROSTONE
  17. TACROLIMUS. [Concomitant]
     Active Substance: TACROLIMUS
  18. BISCACODYL EC [Concomitant]
  19. MEMANTINE HCL ER [Concomitant]
  20. FERROUS SULFATE. [Concomitant]
     Active Substance: FERROUS SULFATE
  21. DIGOXIN. [Concomitant]
     Active Substance: DIGOXIN
  22. LOVAZA [Concomitant]
     Active Substance: OMEGA-3-ACID ETHYL ESTERS

REACTIONS (2)
  - Asthenia [None]
  - Peripheral swelling [None]

NARRATIVE: CASE EVENT DATE: 20181117
